FAERS Safety Report 19352272 (Version 1)
Quarter: 2021Q2

REPORT INFORMATION
  Report Type: Spontaneous
  Country: US (occurrence: US)
  Receive Date: 20210601
  Receipt Date: 20210601
  Transmission Date: 20210717
  Serious: No
  Sender: FDA-Public Use
  Company Number: US-BEH-2021132207

PATIENT
  Sex: Female

DRUGS (11)
  1. QUETIAPINE. [Concomitant]
     Active Substance: QUETIAPINE
  2. VERAPAMIL [Concomitant]
     Active Substance: VERAPAMIL HYDROCHLORIDE
  3. DULOXETINE. [Concomitant]
     Active Substance: DULOXETINE
  4. LORAZEPAM. [Concomitant]
     Active Substance: LORAZEPAM
  5. TRIAMCINOLON [TRIAMCINOLONE ACETONIDE] [Concomitant]
  6. HIZENTRA [Suspect]
     Active Substance: HUMAN IMMUNOGLOBULIN G
     Indication: IMMUNODEFICIENCY COMMON VARIABLE
     Dosage: 10 GRAM (50 ML), QW
     Route: 065
     Dates: start: 20210312
  7. HYDROXYZINE HCL [Concomitant]
     Active Substance: HYDROXYZINE HYDROCHLORIDE
  8. HYDROMORPHONE [Concomitant]
     Active Substance: HYDROMORPHONE
  9. LIDOCAINE PRILOCAINE BIOGARAN [Concomitant]
  10. MUPIROCIN. [Concomitant]
     Active Substance: MUPIROCIN
  11. RIMEGEPANT. [Concomitant]
     Active Substance: RIMEGEPANT

REACTIONS (2)
  - Infusion site extravasation [Not Recovered/Not Resolved]
  - Urticaria [Not Recovered/Not Resolved]
